FAERS Safety Report 6079710-9 (Version None)
Quarter: 2009Q1

REPORT INFORMATION
  Report Type: 
  Country: None (occurrence: None)
  Receive Date: 20090211
  Receipt Date: 20090128
  Transmission Date: 20090719
  Serious: Yes (Hospitalization)
  Sender: FDA-Public Use
  Company Number: DSJ-2009-01185

PATIENT
  Age: 82 Year
  Sex: Female

DRUGS (3)
  1. OLMESARTAN MEDOXOMIL [Suspect]
     Indication: HYPERTENSION
     Dosage: 20 MG, PER ORAL
     Route: 048
  2. PLATIBIT (ALFACALCIDOL) (CAPSULE) (ALFACALCIDOL) [Concomitant]
  3. AMOBAN (ZOPICLONE) (ZOPICLONE) [Concomitant]

REACTIONS (1)
  - PANCREATITIS ACUTE [None]
